FAERS Safety Report 14271715 (Version 1)
Quarter: 2017Q4

REPORT INFORMATION
  Report Type: Spontaneous
  Country: US (occurrence: None)
  Receive Date: 20171211
  Receipt Date: 20171211
  Transmission Date: 20180321
  Serious: No
  Sender: FDA-Public Use
  Company Number: None

PATIENT
  Age: 49 Year
  Sex: Female

DRUGS (1)
  1. REBIF REBIDOSE [Suspect]
     Active Substance: INTERFERON BETA-1A

REACTIONS (5)
  - Muscle spasms [None]
  - Musculoskeletal stiffness [None]
  - Paraesthesia [None]
  - Neck pain [None]
  - Drug dose omission [None]

NARRATIVE: CASE EVENT DATE: 20171127
